FAERS Safety Report 4528843-4 (Version None)
Quarter: 2004Q4

REPORT INFORMATION
  Report Type: 
  Country: None (occurrence: None)
  Receive Date: 20041215
  Receipt Date: 20041215
  Transmission Date: 20050328
  Serious: Yes (Hospitalization)
  Sender: FDA-Public Use
  Company Number: None

PATIENT
  Age: 77 Year
  Sex: Female
  Weight: 69.4 kg

DRUGS (8)
  1. ALEVE [Suspect]
     Indication: ARTHRITIS
     Dosage: 200 MG 2-3 PILLS/DAY
     Dates: end: 20041014
  2. ASPIRIN [Concomitant]
  3. PLAVIX [Concomitant]
  4. LASIX [Concomitant]
  5. POTASSIUM [Concomitant]
  6. LIPITOR [Concomitant]
  7. PEPCID [Concomitant]
  8. ADVAIR 50/500 [Concomitant]

REACTIONS (4)
  - CONTUSION [None]
  - DIZZINESS [None]
  - EPISTAXIS [None]
  - MELAENA [None]
